FAERS Safety Report 4685680-8 (Version None)
Quarter: 2005Q2

REPORT INFORMATION
  Report Type: 
  Country: None (occurrence: None)
  Receive Date: 20050608
  Receipt Date: 20050519
  Transmission Date: 20051028
  Serious: Yes (Other)
  Sender: FDA-Public Use
  Company Number: 8010694

PATIENT
  Age: 49 Year
  Sex: Female

DRUGS (4)
  1. KEPPRA [Suspect]
     Indication: STATUS EPILEPTICUS
     Dosage: PO
     Route: 048
  2. DI-HYDAN [Concomitant]
  3. PHENOBARBITAL [Concomitant]
  4. CARBAMAZEPINE [Concomitant]

REACTIONS (3)
  - DRUG INEFFECTIVE [None]
  - DRUG RASH WITH EOSINOPHILIA AND SYSTEMIC SYMPTOMS [None]
  - STATUS EPILEPTICUS [None]
